FAERS Safety Report 17212909 (Version 1)
Quarter: 2019Q4

REPORT INFORMATION
  Report Type: Spontaneous
  Country: GB (occurrence: GB)
  Receive Date: 20191230
  Receipt Date: 20191230
  Transmission Date: 20200122
  Serious: Yes (Disabling)
  Sender: FDA-Public Use
  Company Number: GB-TEVA-2019-GB-1158811

PATIENT
  Age: 62 Year
  Sex: Female
  Weight: 85 kg

DRUGS (11)
  1. ACIDEX [Concomitant]
     Active Substance: CALCIUM CARBONATE\SODIUM ALGINATE\SODIUM BICARBONATE
     Dosage: TAKE TWO TO FOUR 5ML SPOONFULS AFTER MEALS AND ...
     Dates: start: 20180321
  2. HYOSCINE BUTYLBROMIDE [Concomitant]
     Active Substance: BUTYLSCOPOLAMINE BROMIDE
     Dosage: UP TO 4 TIMES DAILY, 1 DOSAGE FORMS
     Dates: start: 20191016, end: 20191023
  3. CLARITHROMYCIN. [Suspect]
     Active Substance: CLARITHROMYCIN
     Indication: HELICOBACTER INFECTION
     Dosage: 500 MG PER 12 HRS
     Route: 065
     Dates: start: 20191113
  4. METOPROLOL TARTRATE. [Concomitant]
     Active Substance: METOPROLOL TARTRATE
     Dosage: 1 DOSAGE FORMS PER REQUIRED
     Dates: start: 20190530
  5. CALCIPOTRIOL [Concomitant]
     Active Substance: CALCIPOTRIENE
     Dosage: APPLY TO THE AFFECTED AREA, 1 DOSAGE FORMS
     Dates: start: 20180321
  6. INDAPAMIDE. [Concomitant]
     Active Substance: INDAPAMIDE
     Dosage: MORNING, 1 DOSAGE FORMS
     Dates: start: 20190530
  7. BETAMETHASONE VALERATE. [Concomitant]
     Active Substance: BETAMETHASONE VALERATE
     Dosage: APPLY THINLY TO DRY HAIR IN THE MORNING AND AT ...
     Dates: start: 20190404
  8. OMEPRAZOLE. [Concomitant]
     Active Substance: OMEPRAZOLE
     Indication: HELICOBACTER INFECTION
     Dosage: 4 DOSAGE FORMS
     Dates: start: 20180321
  9. BETNOVATE [Concomitant]
     Active Substance: BETAMETHASONE
     Dosage: USE AS DIRECTED
     Dates: start: 20190530
  10. AMOXICILLIN. [Concomitant]
     Active Substance: AMOXICILLIN
     Indication: HELICOBACTER INFECTION
     Dosage: 4 DOSAGE FORMS
     Dates: start: 20191113, end: 20191120
  11. RAMIPRIL. [Concomitant]
     Active Substance: RAMIPRIL
     Dosage: 1 DOSAGE FORMS
     Dates: start: 20190530

REACTIONS (2)
  - Hypersensitivity [Unknown]
  - Pharyngeal swelling [Recovered/Resolved]

NARRATIVE: CASE EVENT DATE: 20191126
